FAERS Safety Report 24358476 (Version 2)
Quarter: 2024Q4

REPORT INFORMATION
  Report Type: Report from Study
  Country: CA (occurrence: CA)
  Receive Date: 20240924
  Receipt Date: 20241111
  Transmission Date: 20250115
  Serious: Yes (Disabling)
  Sender: GILEAD
  Company Number: CA-GILEAD-2024-0688369

PATIENT
  Age: 22 Year
  Sex: Male
  Weight: 119 kg

DRUGS (5)
  1. EMTRICITABINE\TENOFOVIR DISOPROXIL FUMARATE [Suspect]
     Active Substance: EMTRICITABINE\TENOFOVIR DISOPROXIL FUMARATE
     Indication: Prophylaxis against HIV infection
     Dosage: 1 DOSAGE FORM (200-300MG)
     Route: 048
     Dates: start: 20220925, end: 20230718
  2. DEXTRIN [Concomitant]
     Active Substance: ICODEXTRIN
     Indication: Attention deficit hyperactivity disorder
     Route: 048
  3. SYNTHROID [Concomitant]
     Active Substance: LEVOTHYROXINE SODIUM
     Indication: Hypothyroidism
     Dosage: UNK
     Route: 048
  4. OMEPRAZOLE [Concomitant]
     Active Substance: OMEPRAZOLE
     Indication: Gastrooesophageal reflux disease
     Dosage: UNK
     Route: 048
  5. SYMBICORT [Concomitant]
     Active Substance: BUDESONIDE\FORMOTEROL FUMARATE DIHYDRATE
     Indication: Asthma
     Dosage: UNK
     Route: 055

REACTIONS (3)
  - Abdominal pain upper [Recovered/Resolved]
  - Nausea [Recovered/Resolved]
  - Drug hypersensitivity [Unknown]
